FAERS Safety Report 22309093 (Version 1)
Quarter: 2023Q2

REPORT INFORMATION
  Report Type: Spontaneous
  Country: US (occurrence: None)
  Receive Date: 20230511
  Receipt Date: 20230511
  Transmission Date: 20230721
  Serious: No
  Sender: FDA-Public Use
  Company Number: US-ROCHE-3312323

PATIENT
  Sex: Female

DRUGS (7)
  1. OCREVUS [Suspect]
     Active Substance: OCRELIZUMAB
     Indication: Multiple sclerosis
     Dosage: ONGOING: YES
     Route: 042
     Dates: start: 20200907
  2. NORTRIPTYLINE [Concomitant]
     Active Substance: NORTRIPTYLINE
     Dosage: AT NIGHT
  3. CYCLOBENZAPRINE [Concomitant]
     Active Substance: CYCLOBENZAPRINE
  4. SUMATRIPTAN [Concomitant]
     Active Substance: SUMATRIPTAN
  5. GABAPENTIN [Concomitant]
     Active Substance: GABAPENTIN
  6. LAMICTAL [Concomitant]
     Active Substance: LAMOTRIGINE
  7. EXCEDRIN (CANADA) [Concomitant]

REACTIONS (1)
  - Throat tightness [Not Recovered/Not Resolved]

NARRATIVE: CASE EVENT DATE: 20200907
